FAERS Safety Report 8950642 (Version 1)
Quarter: 2012Q4

REPORT INFORMATION
  Report Type: 
  Country: BY (occurrence: BY)
  Receive Date: 20121206
  Receipt Date: 20121206
  Transmission Date: 20130627
  Serious: Yes (Death)
  Sender: FDA-Public Use
  Company Number: BY-COVIDIEN/TYCO HEALTHCARE/MALLINCKRODT-T201204241

PATIENT
  Sex: Female

DRUGS (1)
  1. EXALGO EXTENDED RELEASE [Suspect]
     Indication: PRODUCT USED FOR UNKNOWN INDICATION
     Dosage: 32 mg, UNK
     Route: 048

REACTIONS (2)
  - Death [Fatal]
  - Oedema [Recovered/Resolved]
